FAERS Safety Report 11163992 (Version 2)
Quarter: 2015Q3

REPORT INFORMATION
  Report Type: Spontaneous
  Country: US (occurrence: US)
  Receive Date: 20150604
  Receipt Date: 20150819
  Transmission Date: 20151125
  Serious: No
  Sender: FDA-Public Use
  Company Number: US-PFIZER INC-2015184621

PATIENT
  Age: 63 Year
  Sex: Female
  Weight: 84 kg

DRUGS (12)
  1. VITAMIN D3 [Concomitant]
     Active Substance: CHOLECALCIFEROL
     Indication: BONE LOSS
     Dosage: 1 TABLET, DAILY
     Route: 048
  2. ALEVE [Concomitant]
     Active Substance: NAPROXEN SODIUM
     Indication: PAIN
     Dosage: 1 TABLET, DAILY
     Route: 048
  3. GABAPENTIN. [Suspect]
     Active Substance: GABAPENTIN
     Indication: NERVE INJURY
     Dosage: 600 MG, 1X/DAY (TWO 300 MG CAPSULES AT NIGHT)
  4. GABAPENTIN. [Suspect]
     Active Substance: GABAPENTIN
     Indication: BACK PAIN
  5. ASPIRIN. [Concomitant]
     Active Substance: ASPIRIN
     Indication: COELIAC ARTERY STENOSIS
     Dosage: 81 MG, DAILY
     Route: 048
  6. GABAPENTIN. [Suspect]
     Active Substance: GABAPENTIN
     Indication: SPINAL OSTEOARTHRITIS
     Dosage: 300 MG, 1X/DAY (AT NIGHT)
     Dates: start: 20150428
  7. ATORVASTATIN [Concomitant]
     Active Substance: ATORVASTATIN
     Indication: COELIAC ARTERY STENOSIS
  8. GABAPENTIN. [Suspect]
     Active Substance: GABAPENTIN
     Indication: ARTHRALGIA
     Dosage: 300 MG CAPSULE, ONE CAPSULE IN THE MORNING AND TWO CAPSULES AT NIGHT
     Route: 048
     Dates: end: 201505
  9. HYDROCHLOROTHIAZIDE. [Concomitant]
     Active Substance: HYDROCHLOROTHIAZIDE
     Indication: HYPERTENSION
     Dosage: 12.5 MG, DAILY
     Route: 048
  10. ATORVASTATIN [Concomitant]
     Active Substance: ATORVASTATIN
     Indication: BLOOD CHOLESTEROL INCREASED
     Dosage: 20 MG, DAILY
     Route: 048
  11. CALCIUM [Concomitant]
     Active Substance: CALCIUM
     Indication: BONE LOSS
     Dosage: 1200 MG, DAILY (600MG 2 TABLETS DAILY)
     Route: 048
  12. FISH OIL [Concomitant]
     Active Substance: FISH OIL
     Indication: SUPPLEMENTATION THERAPY
     Dosage: 700 MG, DAILY ( TWO 350 MG CAPSULES)
     Route: 048

REACTIONS (4)
  - Product use issue [Unknown]
  - Dizziness [Not Recovered/Not Resolved]
  - Balance disorder [Not Recovered/Not Resolved]
  - Feeling abnormal [Not Recovered/Not Resolved]

NARRATIVE: CASE EVENT DATE: 201504
